FAERS Safety Report 18589890 (Version 1)
Quarter: 2020Q4

REPORT INFORMATION
  Report Type: Spontaneous
  Country: US (occurrence: US)
  Receive Date: 20201207
  Receipt Date: 20201207
  Transmission Date: 20210114
  Serious: Yes (Other)
  Sender: FDA-Public Use
  Company Number: None

PATIENT
  Age: 64 Year
  Sex: Female

DRUGS (12)
  1. FETZIMA [Concomitant]
     Active Substance: LEVOMILNACIPRAN HYDROCHLORIDE
  2. AIMOVIG [Suspect]
     Active Substance: ERENUMAB-AOOE
     Indication: MIGRAINE
     Dosage: ?          OTHER FREQUENCY:EVERY 30 DAYS;?
     Route: 058
     Dates: start: 20190312
  3. CANDESA/HCTZ [Concomitant]
  4. TIZANIDINE. [Concomitant]
     Active Substance: TIZANIDINE
  5. LATANOPROST. [Concomitant]
     Active Substance: LATANOPROST
  6. METFORMIN [Concomitant]
     Active Substance: METFORMIN HYDROCHLORIDE
  7. ROSUVASTATIN. [Concomitant]
     Active Substance: ROSUVASTATIN
  8. AROPPPPOPRAZOLE [Concomitant]
  9. DORZOL/TIMOL [Concomitant]
  10. LIDO /PRLOCN CRE [Concomitant]
  11. CLONAZEPAM. [Concomitant]
     Active Substance: CLONAZEPAM
  12. ZETIA [Concomitant]
     Active Substance: EZETIMIBE

REACTIONS (1)
  - Breast cancer [None]

NARRATIVE: CASE EVENT DATE: 20201127
